FAERS Safety Report 24080600 (Version 1)
Quarter: 2024Q3

REPORT INFORMATION
  Report Type: Spontaneous
  Country: CN (occurrence: CN)
  Receive Date: 20240711
  Receipt Date: 20240711
  Transmission Date: 20241016
  Serious: Yes (Other)
  Sender: DAIICHI
  Company Number: CN-DSJP-DSJ-2024-131032

PATIENT
  Age: 88 Year
  Sex: Male

DRUGS (2)
  1. EDOXABAN [Suspect]
     Active Substance: EDOXABAN
     Indication: Lacunar infarction
     Dosage: 30 MG, QD
     Route: 048
     Dates: start: 20240629, end: 20240703
  2. EDOXABAN [Suspect]
     Active Substance: EDOXABAN
     Indication: Anticoagulant therapy

REACTIONS (1)
  - Coagulopathy [Recovering/Resolving]

NARRATIVE: CASE EVENT DATE: 20240703
